FAERS Safety Report 6480103-0 (Version None)
Quarter: 2009Q4

REPORT INFORMATION
  Report Type: 
  Country: None (occurrence: None)
  Receive Date: 20091208
  Receipt Date: 20091127
  Transmission Date: 20100525
  Serious: Yes (Other)
  Sender: FDA-Public Use
  Company Number: PHHY2009ES52307

PATIENT
  Age: 84 Year
  Sex: Female

DRUGS (7)
  1. RASILEZ [Interacting]
     Indication: HYPERTENSION
     Dosage: 300 MG, QD
     Route: 048
     Dates: start: 20090609
  2. SINTROM [Suspect]
     Indication: ATRIAL FIBRILLATION
     Dosage: 16MG WEEKLY
     Route: 048
  3. SINTROM [Suspect]
     Route: 048
  4. FAMOTIDINE [Concomitant]
     Dosage: 20 MG
     Route: 048
  5. METFORMIN HCL [Concomitant]
     Indication: TYPE 2 DIABETES MELLITUS
     Dosage: 850MG DAILY
     Route: 048
  6. DINISOR [Concomitant]
     Dosage: 120MG
     Route: 048
  7. EUGLUCON [Concomitant]
     Indication: TYPE 2 DIABETES MELLITUS
     Dosage: 5 MG DAILY
     Route: 048

REACTIONS (2)
  - COAGULOPATHY [None]
  - DRUG INTERACTION [None]
